FAERS Safety Report 4508130-0 (Version None)
Quarter: 2004Q4

REPORT INFORMATION
  Report Type: 
  Country: None (occurrence: None)
  Receive Date: 20041123
  Receipt Date: 20031022
  Transmission Date: 20050328
  Serious: No
  Sender: FDA-Public Use
  Company Number: US-GLAXOSMITHKLINE-A0431175A

PATIENT
  Age: 55 Year
  Sex: Female

DRUGS (3)
  1. WELLBUTRIN [Suspect]
     Indication: DEPRESSION
     Dosage: 450MG PER DAY
     Route: 048
  2. VIVELLE [Concomitant]
  3. CELEBREX [Concomitant]
     Indication: PAIN
     Dosage: 200MG TWICE PER DAY
     Route: 048

REACTIONS (1)
  - TINNITUS [None]
